FAERS Safety Report 9197065 (Version 1)
Quarter: 2013Q1

REPORT INFORMATION
  Report Type: Spontaneous
  Country: US (occurrence: US)
  Receive Date: 20130328
  Receipt Date: 20130328
  Transmission Date: 20140127
  Serious: No
  Sender: FDA-Public Use
  Company Number: US-BAYER-2013-038915

PATIENT
  Age: 64 Year
  Sex: Male
  Weight: 81.63 kg

DRUGS (4)
  1. ALEVE [Suspect]
     Indication: ARTHRITIS
     Dosage: 2 DF, QD
     Route: 048
     Dates: start: 201209
  2. SLEEP MEDICATION [Concomitant]
  3. ANXIOLYTICS [Concomitant]
  4. LUTRESE [Concomitant]

REACTIONS (1)
  - Incorrect drug administration duration [None]
